FAERS Safety Report 17431647 (Version 2)
Quarter: 2020Q3

REPORT INFORMATION
  Report Type: Report from Study
  Country: GB (occurrence: GB)
  Receive Date: 20200218
  Receipt Date: 20200908
  Transmission Date: 20201102
  Serious: Yes (Hospitalization)
  Sender: FDA-Public Use
  Company Number: GB-FRESENIUS KABI-FK202001519

PATIENT
  Age: 18 Year
  Sex: Male

DRUGS (2)
  1. SODIUM CITRATE ACID/TAUROLIDINE (TAUROLOCK) [Suspect]
     Active Substance: TAUROLIDINE
     Indication: PRODUCT USED FOR UNKNOWN INDICATION
     Dates: start: 20200208
  2. SODIUM CHLORIDE 0.9% SOLUTION FOR INFUSION [Suspect]
     Active Substance: SODIUM CHLORIDE
     Indication: PRODUCT USED FOR UNKNOWN INDICATION
     Route: 065
     Dates: start: 20200208

REACTIONS (3)
  - Hypersensitivity [Unknown]
  - Lip swelling [Unknown]
  - Oxygen saturation decreased [Unknown]

NARRATIVE: CASE EVENT DATE: 20200209
